FAERS Safety Report 12192606 (Version 1)
Quarter: 2016Q1

REPORT INFORMATION
  Report Type: Report from Study
  Country: US (occurrence: US)
  Receive Date: 20160318
  Receipt Date: 20160318
  Transmission Date: 20160526
  Serious: Yes (Other)
  Sender: FDA-Public Use
  Company Number: US-BAYER-2016-046414

PATIENT
  Age: 80 Year
  Sex: Female

DRUGS (1)
  1. STIVARGA [Suspect]
     Active Substance: REGORAFENIB
     Indication: COLON CANCER
     Dosage: 160 MG, QD
     Route: 048
     Dates: start: 20160220

REACTIONS (6)
  - Pain in extremity [None]
  - Crying [None]
  - Pain [None]
  - Decreased appetite [None]
  - Abasia [None]
  - Fear of falling [None]

NARRATIVE: CASE EVENT DATE: 2016
